FAERS Safety Report 9543503 (Version 2)
Quarter: 2013Q4

REPORT INFORMATION
  Report Type: Report from Study
  Country: FR (occurrence: FR)
  Receive Date: 20130923
  Receipt Date: 20131014
  Transmission Date: 20140711
  Serious: Yes (Hospitalization)
  Sender: FDA-Public Use
  Company Number: FR-ROCHE-1273793

PATIENT
  Age: 58 Year
  Sex: Male
  Weight: 68 kg

DRUGS (13)
  1. VISMODEGIB [Suspect]
     Indication: BASAL CELL CARCINOMA
     Dosage: DATE OF LAST DOSE PRIOR TO SAE ONSET: 08/SEP/2013
     Route: 048
     Dates: start: 20130213
  2. NIFUROXAZIDE [Concomitant]
     Indication: NEPHROLITHIASIS
     Route: 065
     Dates: start: 20130302, end: 20130304
  3. SMECTA (FRANCE) [Concomitant]
     Indication: GASTROOESOPHAGEAL REFLUX DISEASE
     Route: 065
     Dates: start: 200901
  4. SMECTA (FRANCE) [Concomitant]
     Dosage: 2 BAGS
     Route: 065
     Dates: start: 20130625, end: 20130710
  5. INEGY [Concomitant]
     Indication: HYPERCHOLESTEROLAEMIA
     Route: 065
     Dates: start: 200701, end: 20130625
  6. PRITOR (FRANCE) [Concomitant]
     Indication: HYPERTENSION
     Route: 065
     Dates: start: 200701, end: 20130328
  7. DAIVOBET [Concomitant]
     Indication: PSORIASIS
     Route: 065
     Dates: start: 200601
  8. INEXIUM [Concomitant]
     Indication: GASTROOESOPHAGEAL REFLUX DISEASE
     Route: 065
     Dates: start: 20130304
  9. OKIMUS [Concomitant]
     Indication: MUSCLE SPASMS
     Route: 065
     Dates: start: 20130328, end: 20130415
  10. PRITOR PLUS [Concomitant]
     Indication: HYPERTENSION
     Route: 065
     Dates: start: 20130329
  11. TILCOTIL [Concomitant]
     Indication: ASTHENIA
     Route: 065
     Dates: start: 20130429, end: 20130504
  12. EFUDEX [Concomitant]
     Indication: NEOPLASM
     Dosage: 1 APPLICATION
     Route: 065
     Dates: start: 20130605, end: 20130717
  13. MIMPARA [Concomitant]
     Indication: HYPERPARATHYROIDISM
     Route: 065
     Dates: start: 20130718, end: 20130910

REACTIONS (1)
  - Parathyroid tumour benign [Recovered/Resolved]
